FAERS Safety Report 4518155-7 (Version None)
Quarter: 2004Q4

REPORT INFORMATION
  Report Type: 
  Country: None (occurrence: None)
  Receive Date: 20041130
  Receipt Date: 20041118
  Transmission Date: 20050328
  Serious: Yes (Hospitalization)
  Sender: FDA-Public Use
  Company Number: STA-AE-03-MTX-187

PATIENT
  Age: 67 Year
  Sex: Male

DRUGS (15)
  1. METHOTREXATE [Suspect]
     Indication: RHEUMATOID ARTHRITIS
     Dosage: 7.5 MG 1 X PER 1 WK, ORAL
     Route: 048
     Dates: start: 20020828
  2. ARAVA [Suspect]
     Indication: RHEUMATOID ARTHRITIS
     Dosage: 20 MG 1X PER 1 DAY, ORAL
     Route: 048
     Dates: start: 20020513
  3. ASPIRIN [Suspect]
     Dosage: 81 MG 1X PER 1 DAY, ORAL
     Route: 048
     Dates: end: 20031110
  4. COUMADIN [Suspect]
     Indication: PULMONARY EMBOLISM
     Dosage: 2 MG 4 DAYS PER WEEK AND 1 MG 3 DAYS PER WEEK, ORAL
     Route: 048
     Dates: start: 20030801, end: 20031110
  5. PREDNISONE [Suspect]
     Indication: RHEUMATOID ARTHRITIS
     Dosage: 7.5 MG 1X PER 1 DAY
     Dates: end: 20031101
  6. PREDNISONE [Suspect]
     Indication: RHEUMATOID ARTHRITIS
     Dosage: 48 MG 1X PER 1 DAY, ORAL
     Route: 048
     Dates: start: 20031101, end: 20031101
  7. PREDNISONE [Suspect]
     Indication: RHEUMATOID ARTHRITIS
     Dosage: TAPERING TO 7.5 MG DAILY OVER 3 WEEKS
     Dates: start: 20031101
  8. FLOMAX MR (TAMSULOSIN HYDROCHLORIDE) [Concomitant]
  9. ATENOLOL [Concomitant]
  10. PRAVACHOL [Concomitant]
  11. LEVOXYL [Concomitant]
  12. PREVACID [Concomitant]
  13. LASIX [Concomitant]
  14. POTASSIUM (POTASSIUM) [Concomitant]
  15. FOLIC ACID [Concomitant]

REACTIONS (6)
  - ANAEMIA [None]
  - ASTHENIA [None]
  - BLOOD PRESSURE INCREASED [None]
  - CONJUNCTIVAL HAEMORRHAGE [None]
  - DIZZINESS POSTURAL [None]
  - GASTROINTESTINAL HAEMORRHAGE [None]
